FAERS Safety Report 9393373 (Version 1)
Quarter: 2013Q3

REPORT INFORMATION
  Report Type: Spontaneous
  Country: GB (occurrence: None)
  Receive Date: 20130705
  Receipt Date: 20130705
  Transmission Date: 20140515
  Serious: Yes (Hospitalization)
  Sender: FDA-Public Use
  Company Number: GB-023369

PATIENT
  Age: 66 Year
  Sex: Male

DRUGS (11)
  1. CHLORAMBUCIL [Suspect]
     Indication: CHRONIC LYMPHOCYTIC LEUKAEMIA
     Dosage: 20MG CYCLIC FOR 7 DAYS EVERY 28 DAYS (20 MILLIGRAM),ORAL
     Route: 048
     Dates: start: 20081201, end: 20090513
  2. MABTHERA [Suspect]
     Indication: CHRONIC LYMPHOCYTIC LEUKAEMIA
     Dosage: INTRAVENOUS (NOT OTHERWISE SPECIFIED)?
     Route: 042
     Dates: start: 20081201, end: 20090330
  3. PARACETAMOL (PARACETAMOL) [Concomitant]
  4. TAZOCIN (PIPERACILLIN, TAZOBACTAM) [Concomitant]
  5. MOVICOL (MACROGOL, COMBINATIONS) [Concomitant]
  6. TRAMADOL (TRAMADOL) [Concomitant]
  7. MORPHINE [Concomitant]
  8. MENTHA X PIPERITA [Concomitant]
  9. SODIUM CHLORIDE [Concomitant]
  10. DALTEPARIN (DALTEPARIN) [Concomitant]
  11. CIPROFLOXACIN (CIPROFLOXACIN) [Concomitant]

REACTIONS (4)
  - Neutropenic colitis [None]
  - Influenza like illness [None]
  - White blood cell count decreased [None]
  - Vomiting [None]
